FAERS Safety Report 7461722-1 (Version None)
Quarter: 2011Q2

REPORT INFORMATION
  Report Type: 
  Country: None (occurrence: None)
  Receive Date: 20110506
  Receipt Date: 20110421
  Transmission Date: 20111010
  Serious: Yes (Hospitalization)
  Sender: FDA-Public Use
  Company Number: US-BAYER-201023043NA

PATIENT
  Age: 14 Year
  Sex: Female
  Weight: 63.492 kg

DRUGS (9)
  1. ACCUTANE [Concomitant]
     Indication: ACNE
  2. ALBUTEROL [Concomitant]
     Dosage: UNK
     Dates: start: 19980101, end: 20000101
  3. ADOXA [Concomitant]
     Indication: ACNE
     Dosage: UNK
     Dates: start: 20090601
  4. DROSPIRENONE AND ETHINYL ESTRADIOL [Suspect]
     Indication: ACNE
     Route: 048
     Dates: start: 20090601, end: 20091001
  5. AUGMENTIN [Concomitant]
     Indication: UPPER RESPIRATORY TRACT INFECTION
     Dosage: UNK
     Dates: start: 20091020
  6. ANTIBIOTICS [Concomitant]
     Dosage: UNK
     Dates: start: 19980101, end: 20060101
  7. CLARAVIS [Concomitant]
     Indication: ACNE
     Dosage: UNK
     Route: 048
     Dates: start: 20090701, end: 20091101
  8. NSAID'S [Concomitant]
     Dosage: UNK UNK, PRN
  9. ALBUTEROL SULFATE [Concomitant]
     Dosage: UNK
     Dates: start: 19980101, end: 20000101

REACTIONS (1)
  - DEEP VEIN THROMBOSIS [None]
